FAERS Safety Report 8692904 (Version 2)
Quarter: 2012Q4

REPORT INFORMATION
  Report Type: Spontaneous
  Country: DK (occurrence: None)
  Receive Date: 20120712
  Receipt Date: 20120813
  Transmission Date: 20130627
  Serious: Yes (Other)
  Sender: FDA-Public Use
  Company Number: 2012MA008061

PATIENT
  Sex: Male

DRUGS (1)
  1. RAMIPRIL [Suspect]
     Indication: HYPERTENSION
     Dosage: 2.5 MG; QAM

REACTIONS (1)
  - Balance disorder [None]
